FAERS Safety Report 24046249 (Version 1)
Quarter: 2024Q3

REPORT INFORMATION
  Report Type: Spontaneous
  Country: US (occurrence: None)
  Receive Date: 20240703
  Receipt Date: 20240703
  Transmission Date: 20241016
  Serious: Yes (Hospitalization)
  Sender: Public
  Company Number: None

PATIENT
  Age: 64 Year
  Sex: Female
  Weight: 70.8 kg

DRUGS (1)
  1. CAPECITABINE [Suspect]
     Active Substance: CAPECITABINE
     Dates: end: 20240510

REACTIONS (10)
  - Pyrexia [None]
  - Dyspnoea [None]
  - Hypoxia [None]
  - Hypotension [None]
  - Arthralgia [None]
  - Joint swelling [None]
  - Chondrocalcinosis [None]
  - Chronic obstructive pulmonary disease [None]
  - Joint effusion [None]
  - Sinus tachycardia [None]

NARRATIVE: CASE EVENT DATE: 20240519
